FAERS Safety Report 20993953 (Version 1)
Quarter: 2022Q2

REPORT INFORMATION
  Report Type: Report from Study
  Country: US (occurrence: US)
  Receive Date: 20220622
  Receipt Date: 20220622
  Transmission Date: 20220721
  Serious: Yes (Other)
  Sender: FDA-Public Use
  Company Number: US-ABBVIE-22K-163-4438408-00

PATIENT
  Sex: Male

DRUGS (2)
  1. HUMIRA [Suspect]
     Active Substance: ADALIMUMAB
     Indication: Psoriasis
     Dosage: CITRATE FREE
     Route: 058
  2. HUMIRA [Suspect]
     Active Substance: ADALIMUMAB
     Dosage: DOUBLE DOSE
     Route: 058

REACTIONS (7)
  - Abdominal operation [Unknown]
  - Eyelid disorder [Recovering/Resolving]
  - Weight abnormal [Unknown]
  - Scar [Unknown]
  - Psoriasis [Recovering/Resolving]
  - Drug ineffective [Unknown]
  - Arthralgia [Recovering/Resolving]
